FAERS Safety Report 5086730-X (Version None)
Quarter: 2006Q3

REPORT INFORMATION
  Report Type: 
  Country: None (occurrence: None)
  Receive Date: 20060823
  Receipt Date: 20060814
  Transmission Date: 20061208
  Serious: Yes (Other)
  Sender: FDA-Public Use
  Company Number: GB-ROCHE-459511

PATIENT
  Age: 22 Year
  Sex: Male

DRUGS (2)
  1. ALL-TRANS-RETINOIC ACID [Suspect]
     Route: 048
  2. COMBINATION CHEMOTHERAPY DRUGS [Suspect]
     Route: 065

REACTIONS (1)
  - PLASMACYTOMA [None]
